FAERS Safety Report 23027683 (Version 1)
Quarter: 2023Q4

REPORT INFORMATION
  Report Type: Spontaneous
  Country: US (occurrence: US)
  Receive Date: 20231004
  Receipt Date: 20231004
  Transmission Date: 20240110
  Serious: No
  Sender: FDA-Public Use
  Company Number: US-ELI_LILLY_AND_COMPANY-US202310000707

PATIENT
  Sex: Female

DRUGS (2)
  1. MOUNJARO [Suspect]
     Active Substance: TIRZEPATIDE
     Indication: Product used for unknown indication
     Dosage: 7.5 MG, WEEKLY (1/W)
     Route: 065
  2. COUMADIN [Concomitant]
     Active Substance: WARFARIN SODIUM
     Indication: Coagulopathy
     Dosage: UNK UNK, UNKNOWN
     Route: 065

REACTIONS (3)
  - Incorrect dose administered [Unknown]
  - Injection site injury [Unknown]
  - Injection site haemorrhage [Unknown]
